APPROVED DRUG PRODUCT: ALBUTEROL SULFATE
Active Ingredient: ALBUTEROL SULFATE
Strength: EQ 2MG BASE
Dosage Form/Route: TABLET;ORAL
Application: A073120 | Product #001
Applicant: UCB INC
Approved: Sep 29, 1992 | RLD: No | RS: No | Type: DISCN